FAERS Safety Report 8408875 (Version 5)
Quarter: 2012Q4

REPORT INFORMATION
  Report Type: 
  Country: US (occurrence: US)
  Receive Date: 20120216
  Receipt Date: 20120907
  Transmission Date: 20130627
  Serious: No
  Sender: FDA-Public Use
  Company Number: US-PFIZER INC-2012038510

PATIENT
  Age: 15 Year
  Sex: Male
  Weight: 45 kg

DRUGS (5)
  1. GENOTROPIN [Suspect]
     Indication: GROWTH HORMONE DEFICIENCY
     Dosage: 1 mg, 1x/day, 7 days a week
     Route: 058
     Dates: start: 201110
  2. ZOLOFT [Concomitant]
     Indication: ASPERGER^S DISORDER
     Dosage: 50 mg, daily
  3. ADDERALL XR [Concomitant]
     Indication: ATTENTION DEFICIT/HYPERACTIVITY DISORDER
     Dosage: 15 mg, daily
  4. STOOL SOFTENER [Concomitant]
     Dosage: 100-30 (units not provided)
  5. MELATONIN [Concomitant]
     Dosage: 1 mg, UNK

REACTIONS (3)
  - Injection site haemorrhage [Unknown]
  - Dizziness [Unknown]
  - Incorrect dose administered [Unknown]
